FAERS Safety Report 4747627-5 (Version None)
Quarter: 2005Q3

REPORT INFORMATION
  Report Type: 
  Country: None (occurrence: None)
  Receive Date: 20050818
  Receipt Date: 20050207
  Transmission Date: 20060218
  Serious: No
  Sender: FDA-Public Use
  Company Number: US-BRISTOL-MYERS SQUIBB COMPANY-12852463

PATIENT
  Age: 40 Year
  Sex: Female
  Weight: 91 kg

DRUGS (1)
  1. TEQUIN [Suspect]
     Indication: SINUSITIS
     Route: 048

REACTIONS (1)
  - DRUG INEFFECTIVE [None]
